FAERS Safety Report 14764428 (Version 4)
Quarter: 2018Q3

REPORT INFORMATION
  Report Type: Spontaneous
  Country: IT (occurrence: IT)
  Receive Date: 20180416
  Receipt Date: 20180806
  Transmission Date: 20181010
  Serious: Yes (Hospitalization)
  Sender: FDA-Public Use
  Company Number: IT-TEVA-2018-IT-880196

PATIENT
  Age: 76 Year
  Sex: Male

DRUGS (3)
  1. SERENASE 10 MG/ML GOCCE ORALI, SOLUZIONE [Suspect]
     Active Substance: HALOPERIDOL
     Indication: BIPOLAR DISORDER
     Dosage: 4 GTT DAILY;
     Route: 048
     Dates: start: 20170101, end: 20180104
  2. DEPAKIN [Concomitant]
     Active Substance: VALPROATE SODIUM
     Route: 048
  3. RISPERIDONE TEVA 1 MG COMPRESSE RIVESTITE CON FILM [Suspect]
     Active Substance: RISPERIDONE
     Indication: BIPOLAR DISORDER
     Dosage: 1 DOSAGE FORMS DAILY;
     Route: 048
     Dates: start: 20110101, end: 20180103

REACTIONS (3)
  - Tremor [Recovered/Resolved]
  - Drop attacks [Recovered/Resolved]
  - Parkinsonism [Recovered/Resolved]

NARRATIVE: CASE EVENT DATE: 20180103
